FAERS Safety Report 12374347 (Version 2)
Quarter: 2016Q2

REPORT INFORMATION
  Report Type: Spontaneous
  Country: FR (occurrence: FR)
  Receive Date: 20160517
  Receipt Date: 20160526
  Transmission Date: 20160815
  Serious: Yes (Hospitalization)
  Sender: FDA-Public Use
  Company Number: FR-ACCORD-040694

PATIENT
  Age: 42 Year
  Sex: Male

DRUGS (3)
  1. ONDANSETRON ACCORD [Suspect]
     Active Substance: ONDANSETRON
     Indication: PREMEDICATION
     Dosage: AT 01.32 PM ONDANSENTRON WAS ADMINISTERED
     Route: 042
     Dates: start: 20160422, end: 20160422
  2. CARBOPLATIN HOSPIRA [Suspect]
     Active Substance: CARBOPLATIN
     Indication: GLIOBLASTOMA
     Dosage: AT 01.45 PM, CARBOPLATIN WAS STARTED
     Route: 042
     Dates: start: 20160422, end: 20160422
  3. METHYLPREDNISOLONE MYLAN [Suspect]
     Active Substance: METHYLPREDNISOLONE
     Indication: PREMEDICATION
     Dosage: AT 01.32 PM METHYLPREDNISOLONE WAS RECEIVED
     Route: 042
     Dates: start: 20160422, end: 20160422

REACTIONS (6)
  - Dyspnoea [Recovered/Resolved]
  - Dysarthria [Not Recovered/Not Resolved]
  - Erythema [Recovered/Resolved]
  - Angioedema [Recovered/Resolved]
  - Localised oedema [Unknown]
  - Peripheral coldness [Unknown]

NARRATIVE: CASE EVENT DATE: 20160422
